FAERS Safety Report 17875507 (Version 2)
Quarter: 2020Q2

REPORT INFORMATION
  Report Type: Report from Study
  Country: GB (occurrence: GB)
  Receive Date: 20200609
  Receipt Date: 20200616
  Transmission Date: 20200714
  Serious: Yes (Hospitalization)
  Sender: FDA-Public Use
  Company Number: GB-ROCHE-2615788

PATIENT
  Age: 79 Year
  Sex: Female

DRUGS (17)
  1. CISPLATIN. [Suspect]
     Active Substance: CISPLATIN
     Indication: MALIGNANT NEOPLASM OF UNKNOWN PRIMARY SITE
     Dosage: DATE OF MOST RECENT DOSE (114.75 UNIT NOT REPORTED) OF CISPLATIN PRIOR TO SAE: 28/FEB/2020?UNIT DOSE
     Route: 042
     Dates: start: 20200228
  2. LORATADINE. [Concomitant]
     Active Substance: LORATADINE
     Route: 048
     Dates: start: 20200514
  3. APREPITANT. [Concomitant]
     Active Substance: APREPITANT
     Route: 048
     Dates: start: 20200109
  4. HARTMANN^S [Concomitant]
     Active Substance: CALCIUM CHLORIDE\POTASSIUM CHLORIDE\SODIUM CHLORIDE\SODIUM LACTATE
     Indication: DEHYDRATION
     Route: 042
     Dates: start: 20200513, end: 20200514
  5. AMLODIPINE [Concomitant]
     Active Substance: AMLODIPINE BESYLATE
     Route: 048
     Dates: start: 20091218
  6. ATORVASTATIN [Concomitant]
     Active Substance: ATORVASTATIN
     Route: 048
     Dates: start: 20091218
  7. FILGRASTIM [Concomitant]
     Active Substance: FILGRASTIM
     Indication: NEUTROPENIA
     Route: 058
     Dates: start: 20200131, end: 20200203
  8. PIPERACILLIN AND TAZOBACTAM [Concomitant]
     Active Substance: PIPERACILLIN SODIUM\TAZOBACTAM SODIUM
     Indication: DEHYDRATION
     Dosage: PIPERACILLIN/TAZOBACTAM 4.5G IN SODIUM CHLORIDE 0.9% 100ML
     Route: 042
     Dates: start: 20200513, end: 20200513
  9. PARACETAMOL [Concomitant]
     Active Substance: ACETAMINOPHEN
     Route: 048
     Dates: start: 20200514
  10. CHLORPHENAMINE [Concomitant]
     Active Substance: CHLORPHENIRAMINE MALEATE
     Dosage: GIVEN 30 MINS PRIOR TO GEMCITABINE INFUSION
     Route: 042
     Dates: start: 20200424, end: 20200424
  11. ATEZOLIZUMAB. [Suspect]
     Active Substance: ATEZOLIZUMAB
     Indication: MALIGNANT NEOPLASM OF UNKNOWN PRIMARY SITE
     Dosage: DATE OF MOST RECENT DOSE (1200 UNIT NOT REPORTED) OF ATEZOLIZUMAB PRIOR TO SAE: 22/MAY/2020
     Route: 042
     Dates: start: 20200522
  12. GEMCITABINE. [Suspect]
     Active Substance: GEMCITABINE
     Indication: MALIGNANT NEOPLASM OF UNKNOWN PRIMARY SITE
     Dosage: DATE OF MOST RECENT DOSE (1530 UNIT NOT REPORTED) OF GEMCITABINE PRIOR TO SAE: 06/MAR/2020
     Route: 042
     Dates: start: 20200306
  13. DEXAMETHASONE. [Concomitant]
     Active Substance: DEXAMETHASONE
     Route: 048
     Dates: start: 20200109
  14. RAMIPRIL. [Concomitant]
     Active Substance: RAMIPRIL
     Route: 048
     Dates: start: 20091218
  15. ONDANSETRON [Concomitant]
     Active Substance: ONDANSETRON
     Route: 048
     Dates: start: 20200109
  16. DOMPERIDONE [Concomitant]
     Active Substance: DOMPERIDONE
     Route: 048
     Dates: start: 20200109
  17. CO-AMOXICLAV [AMOXICILLIN;CLAVULANATE POTASSIUM] [Concomitant]
     Active Substance: AMOXICILLIN\CLAVULANATE POTASSIUM
     Indication: DEHYDRATION
     Dosage: AMOXICILLIN/CLAVULANIC ACID 500MG/125MG?ONE TABLET
     Route: 048
     Dates: start: 20200514, end: 20200519

REACTIONS (1)
  - Femoral neck fracture [Not Recovered/Not Resolved]

NARRATIVE: CASE EVENT DATE: 20200602
